FAERS Safety Report 24262145 (Version 1)
Quarter: 2024Q3

REPORT INFORMATION
  Report Type: Spontaneous
  Country: CA (occurrence: None)
  Receive Date: 20240829
  Receipt Date: 20240829
  Transmission Date: 20241017
  Serious: Yes (Other)
  Sender: ASTRAZENECA
  Company Number: 2024A193645

PATIENT
  Age: 31 Year
  Sex: Female
  Weight: 71 kg

DRUGS (9)
  1. QUETIAPINE [Suspect]
     Active Substance: QUETIAPINE
  2. BENADRYL [Suspect]
     Active Substance: DIPHENHYDRAMINE HYDROCHLORIDE
  3. BOTULINUM TOXIN TYPE A [Suspect]
     Active Substance: BOTULINUM TOXIN TYPE A
  4. CLONAZEPAM [Suspect]
     Active Substance: CLONAZEPAM
  5. DIPHENHYDRAMINE HYDROCHLORIDE [Suspect]
     Active Substance: DIPHENHYDRAMINE HYDROCHLORIDE
  6. HYDROCORTISONE [Suspect]
     Active Substance: HYDROCORTISONE\HYDROCORTISONE ACETATE
  7. KEPPRA [Suspect]
     Active Substance: LEVETIRACETAM
  8. LEVETIRACETAM [Suspect]
     Active Substance: LEVETIRACETAM
  9. REMICADE [Suspect]
     Active Substance: INFLIXIMAB

REACTIONS (2)
  - Influenza like illness [Recovered/Resolved]
  - Maternal exposure timing unspecified [Recovered/Resolved]
